FAERS Safety Report 9162944 (Version 1)
Quarter: 2013Q1

REPORT INFORMATION
  Report Type: Report from Study
  Country: GB (occurrence: GB)
  Receive Date: 20130314
  Receipt Date: 20130314
  Transmission Date: 20140127
  Serious: Yes (Hospitalization)
  Sender: FDA-Public Use
  Company Number: GB-GENZYME-CAMP-1000252

PATIENT
  Age: 41 Year
  Sex: Female

DRUGS (5)
  1. ALEMTUZUMAB [Suspect]
     Indication: MULTIPLE SCLEROSIS
     Dosage: 12 MG, QD
     Route: 042
     Dates: start: 20080407, end: 20080411
  2. ALEMTUZUMAB [Suspect]
     Dosage: 12 MG, QD
     Route: 042
     Dates: start: 20090414, end: 20090416
  3. METHYLPREDNISOLONE [Concomitant]
     Indication: PREMEDICATION
     Dosage: 1 G, QD
     Dates: start: 20090414, end: 20090416
  4. CETIRIZINE [Concomitant]
     Indication: PREMEDICATION
     Dosage: 10 MG, QD
     Route: 048
     Dates: start: 20090414, end: 20090416
  5. CETIRIZINE [Concomitant]
     Dosage: 1 G, UNK
     Route: 048
     Dates: start: 20090414

REACTIONS (1)
  - Brain stem syndrome [Recovered/Resolved]
